FAERS Safety Report 4653166-2 (Version None)
Quarter: 2005Q2

REPORT INFORMATION
  Report Type: 
  Country: None (occurrence: None)
  Receive Date: 20050503
  Receipt Date: 20050503
  Transmission Date: 20051028
  Serious: Yes (Life-Threatening, Hospitalization, Other)
  Sender: FDA-Public Use
  Company Number: None

PATIENT
  Age: 46 Year
  Sex: Female
  Weight: 117.9352 kg

DRUGS (2)
  1. SEROQUEL [Suspect]
     Indication: MANIA
     Dosage: 300 MG'S TWICE DAY
     Dates: start: 20020101
  2. SEROQUEL [Suspect]
     Indication: SLEEP DISORDER
     Dosage: 300 MG'S TWICE DAY
     Dates: start: 20020101

REACTIONS (4)
  - BLOOD POTASSIUM DECREASED [None]
  - CARDIAC DISORDER [None]
  - DIABETES MELLITUS [None]
  - PNEUMONIA [None]
